FAERS Safety Report 24093222 (Version 2)
Quarter: 2024Q3

REPORT INFORMATION
  Report Type: Spontaneous
  Country: US (occurrence: US)
  Receive Date: 20240715
  Receipt Date: 20240802
  Transmission Date: 20241017
  Serious: Yes (Other)
  Sender: TEVA
  Company Number: US-TEVA-VS-3217892

PATIENT
  Age: 54 Year
  Sex: Female

DRUGS (8)
  1. PREDNISONE [Suspect]
     Active Substance: PREDNISONE
     Indication: Pyoderma gangrenosum
     Route: 065
  2. Immunoglobulin [Concomitant]
     Indication: Pyoderma gangrenosum
     Dosage: IVIG, MAINTENANCE
     Route: 042
  3. Immunoglobulin [Concomitant]
     Indication: Pyoderma gangrenosum
     Dosage: INITIAL DOSE NOT STATED
     Route: 042
  4. INFLIXIMAB [Suspect]
     Active Substance: INFLIXIMAB
     Indication: Pyoderma gangrenosum
     Route: 065
  5. INFLIXIMAB [Suspect]
     Active Substance: INFLIXIMAB
     Indication: Pyoderma gangrenosum
     Dosage: AGAIN INITIATED; DOSE NOT STATED
     Route: 065
  6. MYCOPHENOLATE MOFETIL [Concomitant]
     Active Substance: MYCOPHENOLATE MOFETIL
     Indication: Pyoderma gangrenosum
     Dosage: INITIAL DOSE NOT STATED
     Route: 065
  7. MYCOPHENOLATE MOFETIL [Concomitant]
     Active Substance: MYCOPHENOLATE MOFETIL
     Indication: Pyoderma gangrenosum
     Dosage: MAINTENANCE
     Route: 065
  8. CYCLOSPORINE [Suspect]
     Active Substance: CYCLOSPORINE
     Indication: Pyoderma gangrenosum
     Dosage: CYCLOSPORINE
     Route: 065

REACTIONS (5)
  - Drug intolerance [Unknown]
  - Swollen tongue [Unknown]
  - Vasculitis [Unknown]
  - Purpura [Unknown]
  - Drug ineffective [Unknown]
